FAERS Safety Report 23303035 (Version 1)
Quarter: 2023Q4

REPORT INFORMATION
  Report Type: Spontaneous
  Country: CA (occurrence: CA)
  Receive Date: 20231215
  Receipt Date: 20231215
  Transmission Date: 20240110
  Serious: Yes (Other)
  Sender: FDA-Public Use
  Company Number: CA-FreseniusKabi-FK202320276

PATIENT
  Sex: Female
  Weight: 73 kg

DRUGS (11)
  1. ADALIMUMAB [Suspect]
     Active Substance: ADALIMUMAB\ISOPROPYL ALCOHOL
     Indication: Product used for unknown indication
     Dosage: FORM OF ADMINISTRATION: SOLUTION SUBCUTANEOUS?ROUTE OF ADMINISTRATION: SUBCUTANEOUS
  2. ACTEMRA [Suspect]
     Active Substance: TOCILIZUMAB
     Indication: Product used for unknown indication
     Dosage: FORM: NOT SPECIFIED?ROUTE OF ADMINISTRATION: SUBCUTANEOUS
  3. ENBREL [Suspect]
     Active Substance: ETANERCEPT
     Indication: Product used for unknown indication
     Dosage: ROUTE OF ADMINISTRATION: SUBCUTANEOUS
  4. HYDROXYCHLOROQUINE SULFATE [Suspect]
     Active Substance: HYDROXYCHLOROQUINE SULFATE
     Indication: Product used for unknown indication
     Dosage: ROUTE OF ADMINISTRATION: UNKNOWN
  5. HYDROXYCHLOROQUINE SULFATE [Suspect]
     Active Substance: HYDROXYCHLOROQUINE SULFATE
     Dosage: ROUTE OF ADMINISTRATION: UNKNOWN
  6. LEFLUNOMIDE [Suspect]
     Active Substance: LEFLUNOMIDE
     Indication: Product used for unknown indication
     Dosage: FORM: NOT SPECIFIED?ROA: UNKNOWN
  7. METHOTREXATE [Suspect]
     Active Substance: METHOTREXATE
     Indication: Rheumatoid arthritis
     Dosage: FORM: NOT SPECIFIED?ROA: SUBCUTANEOUS
  8. SULFASALAZINE [Suspect]
     Active Substance: SULFASALAZINE
     Indication: Rheumatoid arthritis
     Dosage: FORM: NOT SPECIFIED?ROA: UNKNOWN
  9. ORENCIA [Suspect]
     Active Substance: ABATACEPT
     Indication: Product used for unknown indication
     Dosage: ROA: UNKNOWN
  10. PREDNISONE [Concomitant]
     Active Substance: PREDNISONE
     Indication: Rheumatoid arthritis
     Dosage: FORM: NOT SPECIFIED?ROA: UNKNOWN
  11. TOFACITINIB [Concomitant]
     Active Substance: TOFACITINIB
     Indication: Rheumatoid arthritis
     Dosage: ROA: ORAL

REACTIONS (10)
  - Arthralgia [Unknown]
  - Contraindicated product administered [Unknown]
  - Drug ineffective [Unknown]
  - Hepatitis [Unknown]
  - Inflammation [Unknown]
  - Joint swelling [Unknown]
  - Musculoskeletal stiffness [Unknown]
  - Rheumatoid arthritis [Unknown]
  - Therapeutic product effect decreased [Unknown]
  - Treatment failure [Unknown]
